FAERS Safety Report 25539322 (Version 3)
Quarter: 2025Q3

REPORT INFORMATION
  Report Type: Spontaneous
  Country: JP (occurrence: JP)
  Receive Date: 20250710
  Receipt Date: 20250805
  Transmission Date: 20251020
  Serious: Yes (Death)
  Sender: AMGEN
  Company Number: JP-AMGEN-JPNSP2025135866

PATIENT
  Age: 73 Year
  Sex: Female
  Weight: 50.2 kg

DRUGS (9)
  1. UPLIZNA [Suspect]
     Active Substance: INEBILIZUMAB-CDON
     Indication: Neuromyelitis optica spectrum disorder
     Dosage: 300 MILLIGRAM, QD
     Route: 040
     Dates: start: 20240821
  2. UPLIZNA [Suspect]
     Active Substance: INEBILIZUMAB-CDON
     Dosage: 300 MILLIGRAM, QD
     Route: 040
     Dates: start: 20240904, end: 20240904
  3. PREDNISOLONE [Concomitant]
     Active Substance: PREDNISOLONE
     Dates: end: 202502
  4. FUROSEMIDE [Concomitant]
     Active Substance: FUROSEMIDE
     Dates: end: 20250604
  5. SPIRONOLACTONE [Concomitant]
     Active Substance: SPIRONOLACTONE
     Indication: Cardiac failure
     Dates: end: 20250604
  6. MAGNESIUM OXIDE [Concomitant]
     Active Substance: MAGNESIUM OXIDE
     Indication: Constipation
     Dates: end: 20240604
  7. LANSOPRAZOLE [Concomitant]
     Active Substance: LANSOPRAZOLE
     Indication: Gastritis
     Dates: end: 20250604
  8. LIORESAL [Concomitant]
     Active Substance: BACLOFEN
     Indication: Neuromyelitis optica spectrum disorder
     Dates: end: 20250604
  9. ZINC ACETATE [Concomitant]
     Active Substance: ZINC ACETATE
     Indication: Zinc deficiency
     Dates: end: 20250604

REACTIONS (2)
  - Gastrointestinal perforation [Fatal]
  - Urinary tract infection [Fatal]

NARRATIVE: CASE EVENT DATE: 20250531
